FAERS Safety Report 6766995-6 (Version None)
Quarter: 2010Q2

REPORT INFORMATION
  Report Type: 
  Country: None (occurrence: None)
  Receive Date: 20100611
  Receipt Date: 20100603
  Transmission Date: 20101027
  Serious: Yes (Other)
  Sender: FDA-Public Use
  Company Number: US-ROCHE-708545

PATIENT
  Sex: Female

DRUGS (5)
  1. ACTEMRA [Suspect]
     Indication: DRUG USE FOR UNKNOWN INDICATION
     Route: 042
     Dates: start: 20100309
  2. ACTEMRA [Suspect]
     Route: 042
     Dates: start: 20100409
  3. ACTEMRA [Suspect]
     Route: 042
     Dates: start: 20100525
  4. METOPROLOL TARTRATE [Concomitant]
  5. PRAVASTATIN [Concomitant]

REACTIONS (3)
  - DIASTOLIC DYSFUNCTION [None]
  - GASTROINTESTINAL INFECTION [None]
  - VENTRICULAR EXTRASYSTOLES [None]
